FAERS Safety Report 6649655-1 (Version None)
Quarter: 2010Q1

REPORT INFORMATION
  Report Type: 
  Country: None (occurrence: None)
  Receive Date: 20100324
  Receipt Date: 20090331
  Transmission Date: 20100710
  Serious: No
  Sender: FDA-Public Use
  Company Number: US-AMGEN-KDL333636

PATIENT
  Sex: Female

DRUGS (5)
  1. NEULASTA [Suspect]
     Indication: CHEMOTHERAPY
     Dates: start: 20081204
  2. DOXORUBICIN HCL [Concomitant]
  3. BLEOMYCIN [Concomitant]
  4. VINBLASTINE [Concomitant]
  5. DACARBAZINE [Concomitant]

REACTIONS (19)
  - ABDOMINAL PAIN UPPER [None]
  - AXILLARY PAIN [None]
  - BODY TEMPERATURE INCREASED [None]
  - CATHETER SITE ERYTHEMA [None]
  - CHEST DISCOMFORT [None]
  - CHILLS [None]
  - CONSTIPATION [None]
  - CYST [None]
  - DIARRHOEA [None]
  - DYSPNOEA [None]
  - GLOSSODYNIA [None]
  - HEART RATE INCREASED [None]
  - IMPAIRED HEALING [None]
  - LYMPHADENOPATHY [None]
  - NIGHT SWEATS [None]
  - OPEN WOUND [None]
  - PAIN [None]
  - STOMATITIS [None]
  - ULCER [None]
